FAERS Safety Report 17672240 (Version 4)
Quarter: 2020Q3

REPORT INFORMATION
  Report Type: Not Available
  Country: US (occurrence: US)
  Receive Date: 20200415
  Receipt Date: 20200717
  Transmission Date: 20201102
  Serious: No
  Sender: FDA-Public Use
  Company Number: US-NEUROCRINE BIOSCIENCES INC.-2020NBI01205

PATIENT
  Age: 64 Year
  Sex: Male

DRUGS (1)
  1. INGREZZA [Suspect]
     Active Substance: VALBENAZINE
     Indication: TARDIVE DYSKINESIA
     Route: 048
     Dates: start: 20191230

REACTIONS (3)
  - Stomatitis [Not Recovered/Not Resolved]
  - Drooling [Not Recovered/Not Resolved]
  - Dysphagia [Not Recovered/Not Resolved]
